FAERS Safety Report 9766390 (Version 1)
Quarter: 2013Q4

REPORT INFORMATION
  Report Type: Spontaneous
  Country: US (occurrence: US)
  Receive Date: 20131217
  Receipt Date: 20131217
  Transmission Date: 20140711
  Serious: No
  Sender: FDA-Public Use
  Company Number: US-GLAXOSMITHKLINE-A1026986A

PATIENT
  Age: 82 Year
  Sex: Male

DRUGS (10)
  1. VOTRIENT [Suspect]
     Indication: SOFT TISSUE CANCER
     Dosage: 800MG PER DAY
     Route: 048
     Dates: start: 20130419
  2. MULTIVITAMINS [Concomitant]
  3. METOPROLOL [Concomitant]
  4. PRAVASTATIN [Concomitant]
  5. ISOSORBIDE [Concomitant]
  6. GLIPIZIDE [Concomitant]
  7. ENABLEX [Concomitant]
  8. BICALUTAMIDE [Concomitant]
  9. ASPIRIN [Concomitant]
  10. ARICEPT [Concomitant]

REACTIONS (2)
  - Dizziness [Unknown]
  - Headache [Unknown]
